FAERS Safety Report 19252780 (Version 3)
Quarter: 2021Q3

REPORT INFORMATION
  Report Type: Report from Study
  Country: None (occurrence: US)
  Receive Date: 20210512
  Receipt Date: 20210804
  Transmission Date: 20211014
  Serious: Yes (Death, Hospitalization)
  Sender: FDA-Public Use
  Company Number: US-ABBVIE-21K-163-3897715-00

PATIENT
  Age: 88 Year
  Sex: Female

DRUGS (1)
  1. IMBRUVICA [Suspect]
     Active Substance: IBRUTINIB
     Indication: WALDENSTROM^S MACROGLOBULINAEMIA
     Route: 048
     Dates: start: 202012, end: 2021

REACTIONS (6)
  - Cough [Unknown]
  - Synovial cyst [Unknown]
  - Food aversion [Unknown]
  - Fatigue [Unknown]
  - Death [Fatal]
  - Cyst rupture [Unknown]

NARRATIVE: CASE EVENT DATE: 20210527
